FAERS Safety Report 19214412 (Version 13)
Quarter: 2022Q3

REPORT INFORMATION
  Report Type: Report from Study
  Country: JP (occurrence: JP)
  Receive Date: 20210505
  Receipt Date: 20220809
  Transmission Date: 20221027
  Serious: Yes (Hospitalization, Other)
  Sender: FDA-Public Use
  Company Number: JP-ONO-2021JP010555

PATIENT
  Age: 64 Year
  Sex: Male
  Weight: 64 kg

DRUGS (70)
  1. ETELCALCETIDE [Suspect]
     Active Substance: ETELCALCETIDE
     Indication: Hyperparathyroidism secondary
     Dosage: 5 MILLIGRAM, Q56H
     Route: 010
     Dates: start: 20210412, end: 20210611
  2. ETELCALCETIDE [Suspect]
     Active Substance: ETELCALCETIDE
     Dosage: 7.5 MILLIGRAM, Q56H
     Route: 010
     Dates: start: 20210412
  3. DARBEPOETIN ALFA [Concomitant]
     Active Substance: DARBEPOETIN ALFA
     Indication: Nephrogenic anaemia
     Dosage: 5 MICROGRAM, QWK
     Route: 042
     Dates: start: 20191106, end: 20191127
  4. DARBEPOETIN ALFA [Concomitant]
     Active Substance: DARBEPOETIN ALFA
     Dosage: 5 MICROGRAM, QWK
     Route: 042
     Dates: start: 20191218, end: 20200722
  5. DARBEPOETIN ALFA [Concomitant]
     Active Substance: DARBEPOETIN ALFA
     Dosage: 10 MICROGRAM, QWK
     Route: 042
     Dates: start: 20200729, end: 20200923
  6. DARBEPOETIN ALFA [Concomitant]
     Active Substance: DARBEPOETIN ALFA
     Dosage: 20 MICROGRAM, QWK
     Route: 042
     Dates: start: 20200930, end: 20201014
  7. DARBEPOETIN ALFA [Concomitant]
     Active Substance: DARBEPOETIN ALFA
     Dosage: 30 MICROGRAM, QWK
     Route: 042
     Dates: start: 20201021, end: 20201028
  8. DARBEPOETIN ALFA [Concomitant]
     Active Substance: DARBEPOETIN ALFA
     Dosage: 20 MICROGRAM, QWK
     Route: 042
     Dates: start: 20201104, end: 20210421
  9. DARBEPOETIN ALFA [Concomitant]
     Active Substance: DARBEPOETIN ALFA
     Dosage: 30 MICROGRAM, QWK
     Route: 042
     Dates: start: 20210428, end: 20210519
  10. DARBEPOETIN ALFA [Concomitant]
     Active Substance: DARBEPOETIN ALFA
     Dosage: 40 MICROGRAM, QWK
     Route: 042
     Dates: start: 20210526, end: 20210714
  11. DARBEPOETIN ALFA [Concomitant]
     Active Substance: DARBEPOETIN ALFA
     Dosage: 30 MICROGRAM, QWK
     Route: 042
     Dates: start: 20210721, end: 20210811
  12. DARBEPOETIN ALFA [Concomitant]
     Active Substance: DARBEPOETIN ALFA
     Dosage: 20 MICROGRAM, QWK
     Route: 042
     Dates: start: 20210818, end: 20210901
  13. DARBEPOETIN ALFA [Concomitant]
     Active Substance: DARBEPOETIN ALFA
     Dosage: 10 MICROGRAM, QWK
     Route: 042
     Dates: start: 20210908, end: 20211006
  14. DARBEPOETIN ALFA [Concomitant]
     Active Substance: DARBEPOETIN ALFA
     Dosage: 20 MICROGRAM, QWK
     Route: 042
     Dates: start: 20211020, end: 20211027
  15. DARBEPOETIN ALFA [Concomitant]
     Active Substance: DARBEPOETIN ALFA
     Dosage: 30 MICROGRAM, QWK
     Route: 042
     Dates: start: 20211103, end: 20211201
  16. DARBEPOETIN ALFA [Concomitant]
     Active Substance: DARBEPOETIN ALFA
     Dosage: 20 MICROGRAM, QWK
     Route: 042
     Dates: start: 20211208, end: 20220216
  17. DARBEPOETIN ALFA [Concomitant]
     Active Substance: DARBEPOETIN ALFA
     Dosage: 10 MICROGRAM, QWK
     Route: 042
     Dates: start: 20220223, end: 20220511
  18. DARBEPOETIN ALFA [Concomitant]
     Active Substance: DARBEPOETIN ALFA
     Dosage: 20 MICROGRAM, QWK
     Route: 042
     Dates: start: 20220518, end: 20220601
  19. DARBEPOETIN ALFA [Concomitant]
     Active Substance: DARBEPOETIN ALFA
     Dosage: 30 MICROGRAM, QWK
     Route: 042
     Dates: start: 20220608, end: 20220615
  20. DARBEPOETIN ALFA [Concomitant]
     Active Substance: DARBEPOETIN ALFA
     Dosage: 40 MICROGRAM, QWK
     Route: 042
     Dates: start: 20220622, end: 20220706
  21. DARBEPOETIN ALFA [Concomitant]
     Active Substance: DARBEPOETIN ALFA
     Dosage: 60 MICROGRAM, QWK
     Route: 042
     Dates: start: 20220713
  22. OXAROL [Concomitant]
     Active Substance: MAXACALCITOL
     Dosage: 2.5 MICROGRAM, Q56H
     Route: 065
     Dates: end: 20210915
  23. OXAROL [Concomitant]
     Active Substance: MAXACALCITOL
     Dosage: 5 MICROGRAM, Q84H
     Route: 065
     Dates: start: 20210917, end: 20211018
  24. OXAROL [Concomitant]
     Active Substance: MAXACALCITOL
     Dosage: 2.5 MICROGRAM, Q56H
     Route: 065
     Dates: start: 20211022, end: 20211101
  25. OXAROL [Concomitant]
     Active Substance: MAXACALCITOL
     Dosage: 2.5 MICROGRAM, Q84H
     Route: 065
     Dates: start: 20211105, end: 20211119
  26. OXAROL [Concomitant]
     Active Substance: MAXACALCITOL
     Dosage: 2.5 MICROGRAM, Q56H
     Route: 065
     Dates: start: 20220114, end: 20220314
  27. OXAROL [Concomitant]
     Active Substance: MAXACALCITOL
     Dosage: 2.5 MICROGRAM, Q84H
     Route: 065
     Dates: start: 20220318, end: 20220411
  28. OXAROL [Concomitant]
     Active Substance: MAXACALCITOL
     Dosage: 2.5 MICROGRAM, Q56H
     Route: 065
     Dates: start: 20220413, end: 20220509
  29. OXAROL [Concomitant]
     Active Substance: MAXACALCITOL
     Dosage: 2.5 MICROGRAM, Q56H
     Route: 065
     Dates: start: 20220608
  30. LEVOCARNITINE [Concomitant]
     Active Substance: LEVOCARNITINE
     Indication: Nephrogenic anaemia
     Dosage: 1000 MICROGRAM, Q56H
     Route: 042
  31. ASPIRIN [Concomitant]
     Active Substance: ASPIRIN
     Indication: Prophylaxis
     Dosage: 100 MILLIGRAM, QD, AFTER BREAKFAST
     Route: 048
     Dates: end: 20210422
  32. ASPIRIN [Concomitant]
     Active Substance: ASPIRIN
     Indication: Ischaemic heart disease prophylaxis
  33. LANSOPRAZOLE [Concomitant]
     Active Substance: LANSOPRAZOLE
     Indication: Gastrooesophageal reflux disease
     Dosage: 15 MG, EVERYDAY, AFTER BREAKFAST
     Route: 048
  34. LANSOPRAZOLE [Concomitant]
     Active Substance: LANSOPRAZOLE
     Indication: Gastrooesophageal reflux disease
  35. PREDNISOLONE [Concomitant]
     Active Substance: PREDNISOLONE
     Indication: Glomerulonephritis chronic
     Dosage: 5 MILLIGRAM, QD, AFTER BREAKFAST
     Route: 048
     Dates: start: 20210730
  36. NICORANDIL [Concomitant]
     Active Substance: NICORANDIL
     Indication: Angina pectoris
     Dosage: 5 MILLIGRAM, Q8H, AFTER EACH MEAL
     Route: 048
  37. REBAMIPIDE [Concomitant]
     Active Substance: REBAMIPIDE
     Indication: Chronic gastritis
     Dosage: 100 MILLIGRAM, Q8H, AFTER EACH MEAL
     Route: 048
  38. CARVEDILOL [Concomitant]
     Active Substance: CARVEDILOL
     Indication: Hypertension
     Dosage: 2.5 MILLIGRAM, QD, AFTER BREAKFAST, NON-DIALYSIS DAY
     Route: 048
  39. CARVEDILOL [Concomitant]
     Active Substance: CARVEDILOL
     Indication: Cardiac failure chronic
  40. VALSARTAN [Concomitant]
     Active Substance: VALSARTAN
     Indication: Hypertension
     Dosage: 10 MILLIGRAM, QD, AFTER BREAKFAST, NON-DIALYSIS DAY
     Route: 048
  41. DOMPERIDONE [Concomitant]
     Active Substance: DOMPERIDONE
     Indication: Abdominal discomfort
     Dosage: 10 MILLIGRAM, PRN
     Route: 048
     Dates: start: 20210409
  42. DOMPERIDONE [Concomitant]
     Active Substance: DOMPERIDONE
     Indication: Nausea
  43. HERBALS [Concomitant]
     Active Substance: HERBALS
     Indication: Abdominal discomfort
     Dosage: 2.5 GRAM, Q8H, AFTER EACH MEAL
     Route: 048
  44. MOSAPRIDE CITRATE [Concomitant]
     Active Substance: MOSAPRIDE CITRATE
     Indication: Abdominal discomfort
     Dosage: 5 MILLIGRAM, Q8H, AFTER EACH MEAL
     Route: 048
  45. SENNOSIDES A AND B [Concomitant]
     Active Substance: SENNOSIDES A AND B
     Indication: Constipation
     Dosage: 24 MILLIGRAM, BEFORE SLEEP (ADJUSTMENT BY THE PATIENT)
     Route: 048
  46. SENNA LEAF [Concomitant]
     Active Substance: SENNA LEAF
     Indication: Constipation
     Dosage: 0.5 GRAM, BEFORE SLEEP (ADJUSTMENT BY THE PATIENT)
     Route: 048
  47. DROXIDOPA [Concomitant]
     Active Substance: DROXIDOPA
     Indication: Dialysis hypotension
     Dosage: 200 MILLIGRAM, Q56H, DIALYSIS DAY
     Route: 048
  48. ICOSAPENT ETHYL [Concomitant]
     Active Substance: ICOSAPENT ETHYL
     Indication: Dyslipidaemia
     Dosage: 900 MILLIGRAM, QD, AFTER DINNER
     Route: 048
  49. CLOPIDOGREL [Concomitant]
     Active Substance: CLOPIDOGREL BISULFATE
     Indication: Peripheral arterial occlusive disease
     Dosage: 75 MILLIGRAM, QD,  AFTER DINNER
     Route: 048
     Dates: start: 20191006, end: 20211013
  50. CLOPIDOGREL [Concomitant]
     Active Substance: CLOPIDOGREL BISULFATE
     Dosage: 75 MILLIGRAM, QD, AFTER DINNER
     Route: 048
     Dates: start: 20211101
  51. FOSRENOL [Concomitant]
     Active Substance: LANTHANUM CARBONATE
     Indication: Hyperphosphataemia
     Dosage: 500 MILLIGRAM, Q8H, IMMEDIATELY BEFORE EVERY MEAL
     Route: 048
     Dates: start: 20200424, end: 20211020
  52. FOSRENOL [Concomitant]
     Active Substance: LANTHANUM CARBONATE
     Dosage: 500 MG, Q8H
     Route: 048
     Dates: start: 20211223, end: 20220505
  53. ROSUVASTATIN CALCIUM [Concomitant]
     Active Substance: ROSUVASTATIN CALCIUM
     Indication: Dyslipidaemia
     Dosage: 5 MILLIGRAM, QD, AFTER DINNER
     Route: 048
     Dates: start: 20200601
  54. ROSUVASTATIN CALCIUM [Concomitant]
     Active Substance: ROSUVASTATIN CALCIUM
     Dosage: 10 MILLIGRAM, QD, AFTER DINNER
     Route: 048
     Dates: start: 20211126
  55. SODIUM PICOSULFATE [Concomitant]
     Active Substance: SODIUM PICOSULFATE
     Indication: Constipation
     Dosage: 10-15 DROPS/DOSE, PRN
     Route: 048
     Dates: start: 20200601
  56. WARFARIN [Concomitant]
     Active Substance: WARFARIN
     Dosage: UNK
     Route: 065
     Dates: start: 20210422, end: 20210614
  57. EVOCALCET [Concomitant]
     Active Substance: EVOCALCET
     Dosage: 2 MILLIGRAM, QD
     Route: 048
     Dates: start: 20210712, end: 20210725
  58. EVOCALCET [Concomitant]
     Active Substance: EVOCALCET
     Dosage: 3 MILLIGRAM, QD
     Route: 048
     Dates: start: 20210726, end: 20210805
  59. EVOCALCET [Concomitant]
     Active Substance: EVOCALCET
     Dosage: 4 MILLIGRAM, QD
     Route: 048
     Dates: start: 20210806, end: 20220113
  60. EVOCALCET [Concomitant]
     Active Substance: EVOCALCET
     Dosage: 5 MILLIGRAM, QD, AFTER DINNER
     Route: 048
     Dates: start: 20220114
  61. METHYLCOBALAMIN [Concomitant]
     Active Substance: METHYLCOBALAMIN
     Indication: Carpal tunnel syndrome
     Dosage: 500 MICROGRAM, Q8H, AFTER EACH MEAL
     Route: 048
     Dates: start: 20200901
  62. LINAGLIPTIN [Concomitant]
     Active Substance: LINAGLIPTIN
     Indication: Type 2 diabetes mellitus
     Dosage: 5 MILLIGRAM, QD, AFTER BREAKFAST
     Route: 048
     Dates: start: 20210607, end: 20211024
  63. LINAGLIPTIN [Concomitant]
     Active Substance: LINAGLIPTIN
     Dosage: 5 MILLIGRAM, QD, AFTER BREAKFAST
     Route: 048
     Dates: start: 20211029
  64. ACETAMINOPHEN [Concomitant]
     Active Substance: ACETAMINOPHEN
     Indication: Carpal tunnel syndrome
     Dosage: 250 MILLIGRAM, Q8H, , AFTER EACH MEAL
     Route: 048
     Dates: start: 20210728
  65. ACETAMINOPHEN [Concomitant]
     Active Substance: ACETAMINOPHEN
     Indication: Pain
  66. ADETPHOS [Concomitant]
     Active Substance: ADENOSINE TRIPHOSPHATE
     Indication: Dizziness
     Dosage: 1 GRAM, Q8H, AFTER EACH MEAL
     Route: 048
     Dates: start: 20211004
  67. BETAHISTINE MESILATE [Concomitant]
     Active Substance: BETAHISTINE MESILATE
     Indication: Dizziness
     Dosage: 6 MILLIGRAM, Q8H, AFTER EACH MEAL
     Route: 048
     Dates: start: 20211004
  68. IFENPRODIL [Concomitant]
     Active Substance: IFENPRODIL
     Indication: Dizziness
     Dosage: 20 MILLIGRAM, Q8H, AFTER EACH MEAL
     Route: 048
     Dates: start: 20211008
  69. ACOTIAMIDE HYDROCHLORIDE [Concomitant]
     Active Substance: ACOTIAMIDE HYDROCHLORIDE
     Indication: Abdominal discomfort
     Dosage: 100 MG, Q8H, AFTER EACH MEAL
     Route: 048
     Dates: start: 20220411
  70. HERBAL NOS [Concomitant]
     Active Substance: HERBALS
     Indication: Abdominal discomfort
     Dosage: 2.5 GRAM, Q12H
     Route: 048

REACTIONS (5)
  - Myelopathy [Recovering/Resolving]
  - Cholangitis [Recovering/Resolving]
  - Cholecystitis [Recovering/Resolving]
  - Fall [Unknown]
  - Wound [Not Recovered/Not Resolved]

NARRATIVE: CASE EVENT DATE: 20211013
